FAERS Safety Report 20775153 (Version 1)
Quarter: 2022Q2

REPORT INFORMATION
  Report Type: Spontaneous
  Country: US (occurrence: None)
  Receive Date: 20220502
  Receipt Date: 20220502
  Transmission Date: 20220720
  Serious: No
  Sender: FDA-Public Use
  Company Number: None

PATIENT
  Age: 67 Year
  Sex: Female

DRUGS (9)
  1. LENALIDOMIDE [Suspect]
     Active Substance: LENALIDOMIDE
  2. VITAMINS [Concomitant]
     Active Substance: VITAMINS
  3. SODIUM CHLORIDE [Concomitant]
     Active Substance: SODIUM CHLORIDE
  4. THIAMINE [Concomitant]
     Active Substance: THIAMINE
  5. FERROUS SULFATE [Concomitant]
     Active Substance: FERROUS SULFATE
  6. FOLIC ACID [Concomitant]
     Active Substance: FOLIC ACID
  7. PREDNISONE [Concomitant]
     Active Substance: PREDNISONE
  8. TRAMADOL [Concomitant]
     Active Substance: TRAMADOL
  9. ACETAMINOPHEN [Concomitant]
     Active Substance: ACETAMINOPHEN

REACTIONS (5)
  - Pneumonia [None]
  - Refusal of treatment by patient [None]
  - Blood sodium decreased [None]
  - Pyrexia [None]
  - Therapy interrupted [None]

NARRATIVE: CASE EVENT DATE: 20220423
